FAERS Safety Report 7771105-2 (Version None)
Quarter: 2011Q3

REPORT INFORMATION
  Report Type: 
  Country: None (occurrence: None)
  Receive Date: 20110922
  Receipt Date: 20110916
  Transmission Date: 20111222
  Serious: Yes (Death)
  Sender: FDA-Public Use
  Company Number: US-PFIZER INC-2011216656

PATIENT
  Sex: Female
  Weight: 51.7 kg

DRUGS (2)
  1. OXYCODONE [Suspect]
     Indication: DRUG ABUSE
  2. MORPHINE SULFATE [Suspect]
     Indication: DRUG ABUSE

REACTIONS (2)
  - MULTIPLE DRUG OVERDOSE [None]
  - SUBSTANCE ABUSE [None]
